FAERS Safety Report 8189353-9 (Version None)
Quarter: 2012Q1

REPORT INFORMATION
  Report Type: 
  Country: None (occurrence: None)
  Receive Date: 20120307
  Receipt Date: 20120302
  Transmission Date: 20120608
  Serious: Yes (Other)
  Sender: FDA-Public Use
  Company Number: US-AMGEN-USASP2011051608

PATIENT
  Sex: Female
  Weight: 84.354 kg

DRUGS (3)
  1. NPLATE [Suspect]
     Indication: IDIOPATHIC THROMBOCYTOPENIC PURPURA
     Dosage: 9 MUG/KG, QWK
     Route: 058
     Dates: start: 20110513, end: 20110902
  2. IVIGLOB-EX [Concomitant]
     Indication: IDIOPATHIC THROMBOCYTOPENIC PURPURA
     Dosage: UNK UNK, PRN
     Route: 042
     Dates: start: 20060601
  3. PREDNISONE TAB [Concomitant]
     Indication: THROMBOCYTOPENIA
     Dosage: 40 MG, UNK
     Route: 048
     Dates: start: 20040401, end: 20110601

REACTIONS (1)
  - THERAPEUTIC RESPONSE DECREASED [None]
